FAERS Safety Report 16182271 (Version 2)
Quarter: 2019Q2

REPORT INFORMATION
  Report Type: Report from Study
  Country: US (occurrence: US)
  Receive Date: 20190410
  Receipt Date: 20190508
  Transmission Date: 20190711
  Serious: Yes (Other)
  Sender: FDA-Public Use
  Company Number: US-JAZZ-2017-US-008546

PATIENT
  Age: 49 Year
  Sex: Female

DRUGS (46)
  1. XYREM [Suspect]
     Active Substance: SODIUM OXYBATE
     Dosage: 4.5 G, BID
     Route: 048
     Dates: start: 201602
  2. CYMBALTA [Concomitant]
     Active Substance: DULOXETINE HYDROCHLORIDE
  3. TESSALON [Concomitant]
     Active Substance: BENZONATATE
  4. IMMUNE BOOST [Concomitant]
     Active Substance: DIETARY SUPPLEMENT
  5. VITAMIN C [Concomitant]
     Active Substance: ASCORBIC ACID
  6. LUNESTA [Concomitant]
     Active Substance: ESZOPICLONE
  7. TOPAMAX [Concomitant]
     Active Substance: TOPIRAMATE
  8. PROGESTERONE. [Suspect]
     Active Substance: PROGESTERONE
     Indication: PRODUCT USED FOR UNKNOWN INDICATION
  9. NUVIGIL [Concomitant]
     Active Substance: ARMODAFINIL
  10. CEFUROXIME AXETIL. [Concomitant]
     Active Substance: CEFUROXIME AXETIL
  11. OMEPRAZOLE. [Concomitant]
     Active Substance: OMEPRAZOLE
  12. VITAMIN B12 [Concomitant]
     Active Substance: CYANOCOBALAMIN
  13. TOBRAMYCIN. [Concomitant]
     Active Substance: TOBRAMYCIN
  14. ECHINACEA PURPUREA [Concomitant]
     Active Substance: ECHINACEA PURPUREA
  15. ARMOUR THYROID [Concomitant]
     Active Substance: THYROID, PORCINE
  16. AMOXICILLIN. [Concomitant]
     Active Substance: AMOXICILLIN
  17. ALLIUM SATIVUM [Concomitant]
  18. KLOR-CON [Concomitant]
     Active Substance: POTASSIUM CHLORIDE
  19. FISH OIL CONCENTRATE [Concomitant]
     Active Substance: FISH OIL
  20. METAXALONE. [Concomitant]
     Active Substance: METAXALONE
  21. BENZONATATE. [Concomitant]
     Active Substance: BENZONATATE
  22. VITAMIN D2 [Concomitant]
     Active Substance: ERGOCALCIFEROL
  23. BIOTIN [Concomitant]
     Active Substance: BIOTIN
  24. ZYRTEC [Concomitant]
     Active Substance: CETIRIZINE HYDROCHLORIDE
  25. VITAMIN D3 [Concomitant]
     Active Substance: CHOLECALCIFEROL
  26. XYREM [Suspect]
     Active Substance: SODIUM OXYBATE
     Indication: CATAPLEXY
     Dosage: DOSE ADJUSTMENT
     Route: 048
     Dates: start: 2015, end: 2016
  27. PREDNISONE. [Concomitant]
     Active Substance: PREDNISONE
  28. COLACE [Concomitant]
     Active Substance: DOCUSATE SODIUM
  29. TESTOSTERONE. [Concomitant]
     Active Substance: TESTOSTERONE
  30. TOPIRAMATE. [Concomitant]
     Active Substance: TOPIRAMATE
  31. REMERON [Concomitant]
     Active Substance: MIRTAZAPINE
  32. TEMAZEPAM. [Concomitant]
     Active Substance: TEMAZEPAM
  33. GABAPENTIN. [Concomitant]
     Active Substance: GABAPENTIN
  34. ALBUTEROL SULFATE. [Concomitant]
     Active Substance: ALBUTEROL SULFATE
  35. CYTOMEL [Concomitant]
     Active Substance: LIOTHYRONINE SODIUM
  36. CYCLOBENZAPRINE. [Concomitant]
     Active Substance: CYCLOBENZAPRINE
  37. DIPHENHYDRAMINE. [Concomitant]
     Active Substance: DIPHENHYDRAMINE
  38. XOPENEX [Concomitant]
     Active Substance: LEVALBUTEROL HYDROCHLORIDE
  39. SYNTHROID [Concomitant]
     Active Substance: LEVOTHYROXINE SODIUM
  40. ZETONNA [Concomitant]
     Active Substance: CICLESONIDE
  41. IMMUNOCAL [Concomitant]
  42. XYREM [Suspect]
     Active Substance: SODIUM OXYBATE
     Indication: NARCOLEPSY
     Dosage: 1.5 G, BID
     Route: 048
     Dates: start: 201506, end: 2015
  43. ALEVE [Concomitant]
     Active Substance: NAPROXEN SODIUM
  44. CALCIUM + VIT D [Concomitant]
     Active Substance: CALCIUM\VITAMIN D
  45. LIOTHYRONINE [Concomitant]
     Active Substance: LIOTHYRONINE
  46. SODIUM CHLORIDE. [Concomitant]
     Active Substance: SODIUM CHLORIDE

REACTIONS (7)
  - Weight increased [Unknown]
  - Sleep apnoea syndrome [Unknown]
  - Respiration abnormal [Recovering/Resolving]
  - Somnolence [Not Recovered/Not Resolved]
  - Sleep apnoea syndrome [Unknown]
  - Asthma [Unknown]
  - Blood pressure decreased [Recovered/Resolved]

NARRATIVE: CASE EVENT DATE: 201903
